FAERS Safety Report 14306009 (Version 2)
Quarter: 2018Q1

REPORT INFORMATION
  Report Type: Spontaneous
  Country: US (occurrence: US)
  Receive Date: 20171219
  Receipt Date: 20180110
  Transmission Date: 20180509
  Serious: No
  Sender: FDA-Public Use
  Company Number: US-PFIZER INC-2017534677

PATIENT
  Age: 11 Year
  Sex: Male

DRUGS (1)
  1. EPIPEN [Suspect]
     Active Substance: EPINEPHRINE
     Dosage: UNK

REACTIONS (5)
  - Accidental exposure to product by child [Recovered/Resolved]
  - Hyperhidrosis [Recovered/Resolved]
  - Foreign body [Unknown]
  - Erythema [Recovered/Resolved]
  - Heart rate increased [Recovered/Resolved]
